FAERS Safety Report 22034407 (Version 1)
Quarter: 2023Q1

REPORT INFORMATION
  Report Type: Spontaneous
  Country: US (occurrence: US)
  Receive Date: 20230224
  Receipt Date: 20230224
  Transmission Date: 20230418
  Serious: No
  Sender: FDA-Public Use
  Company Number: US-SA-SAC20230222001066

PATIENT
  Age: 48 Year
  Sex: Male

DRUGS (1)
  1. FABRAZYME [Suspect]
     Active Substance: AGALSIDASE BETA
     Indication: Fabry^s disease
     Dosage: UNK
     Route: 042
     Dates: start: 20221025

REACTIONS (4)
  - Infusion site discolouration [Unknown]
  - Flushing [Unknown]
  - Dyspnoea [Unknown]
  - Chills [Unknown]

NARRATIVE: CASE EVENT DATE: 20230214
